FAERS Safety Report 23512975 (Version 2)
Quarter: 2024Q3

REPORT INFORMATION
  Report Type: Spontaneous
  Country: JP (occurrence: JP)
  Receive Date: 20240212
  Receipt Date: 20240710
  Transmission Date: 20241017
  Serious: Yes (Other)
  Sender: PIERRE FABRE MEDICAMENT
  Company Number: JP-maruho-EVC202300195PFM

PATIENT
  Age: 1 Month
  Sex: Female
  Weight: 1.22 kg

DRUGS (5)
  1. PROPRANOLOL HYDROCHLORIDE [Suspect]
     Active Substance: PROPRANOLOL HYDROCHLORIDE
     Indication: Infantile haemangioma
     Dosage: 0.1 ML, EVERY 12 HR
     Route: 048
     Dates: start: 20230405
  2. PROPRANOLOL HYDROCHLORIDE [Suspect]
     Active Substance: PROPRANOLOL HYDROCHLORIDE
     Dosage: 0.2 ML, EVERY 12 HR
     Route: 048
     Dates: start: 20230412
  3. PROPRANOLOL HYDROCHLORIDE [Suspect]
     Active Substance: PROPRANOLOL HYDROCHLORIDE
     Dosage: 0.35  ML, EVERY 12 HR
     Route: 048
     Dates: start: 20230419
  4. PROPRANOLOL HYDROCHLORIDE [Suspect]
     Active Substance: PROPRANOLOL HYDROCHLORIDE
     Dosage: 0.45  ML, EVERY 12 HR
     Route: 048
     Dates: start: 20230519
  5. DEXTROSE [Concomitant]
     Active Substance: DEXTROSE\DEXTROSE MONOHYDRATE
     Indication: Hyperinsulinaemic hypoglycaemia
     Dosage: UNK, NOT REPORTED
     Route: 041

REACTIONS (3)
  - Sinus bradycardia [Not Recovered/Not Resolved]
  - Contraindicated product administered [Unknown]
  - Off label use [Unknown]

NARRATIVE: CASE EVENT DATE: 20230420
